FAERS Safety Report 22295365 (Version 1)
Quarter: 2023Q2

REPORT INFORMATION
  Report Type: Spontaneous
  Country: CA (occurrence: CA)
  Receive Date: 20230508
  Receipt Date: 20230508
  Transmission Date: 20230722
  Serious: Yes (Other)
  Sender: FDA-Public Use
  Company Number: CA-PFIZER INC-202300181225

PATIENT
  Age: 65 Year
  Sex: Female

DRUGS (6)
  1. METHOTREXATE SODIUM [Suspect]
     Active Substance: METHOTREXATE SODIUM
     Dosage: UNK
  2. ATORVASTATIN [Concomitant]
     Active Substance: ATORVASTATIN
     Dosage: 1 DF
  3. METOPROLOL [Concomitant]
     Active Substance: METOPROLOL
     Dosage: 1 DF
  4. OMEPRAZOLE [Concomitant]
     Active Substance: OMEPRAZOLE
     Dosage: 1 DF
  5. PREDNISONE [Concomitant]
     Active Substance: PREDNISONE
     Dosage: 1 DF
  6. PREGABALIN [Concomitant]
     Active Substance: PREGABALIN
     Dosage: 1 DF

REACTIONS (2)
  - Rheumatoid arthritis [Unknown]
  - Nausea [Not Recovered/Not Resolved]
